FAERS Safety Report 8538848-4 (Version None)
Quarter: 2012Q3

REPORT INFORMATION
  Report Type: 
  Country: None (occurrence: None)
  Receive Date: 20120726
  Receipt Date: 20120718
  Transmission Date: 20120928
  Serious: Yes (Other)
  Sender: FDA-Public Use
  Company Number: JP-VERTEX PHARMACEUTICALS INC.-AE-2012-010808

PATIENT
  Sex: Male

DRUGS (3)
  1. TELAVIC (TELAPREVIR) [Suspect]
     Route: 048
  2. RIBAVIRIN [Concomitant]
     Route: 048
  3. PEGINTERFERON ALFA-2B [Concomitant]
     Route: 058

REACTIONS (1)
  - CONVULSION [None]
